FAERS Safety Report 5169249-7 (Version None)
Quarter: 2006Q4

REPORT INFORMATION
  Report Type: 
  Country: None (occurrence: None)
  Receive Date: 20061127
  Receipt Date: 20061114
  Transmission Date: 20070319
  Serious: Yes (Hospitalization)
  Sender: FDA-Public Use
  Company Number: 230922

PATIENT
  Age: 60 Year
  Sex: Male
  Weight: 54 kg

DRUGS (11)
  1. AVASTIN [Suspect]
     Indication: COLORECTAL CANCER
     Dosage: UNK, UNK, INTRAVENOUS
     Route: 042
     Dates: start: 20060720, end: 20060802
  2. ZOLPIDEM TARTRATE [Concomitant]
  3. PROSCAR [Concomitant]
  4. XATRAL (ALFUZOSIN HYDROCHLORIDE) [Concomitant]
  5. SOTALOL HCL [Concomitant]
  6. SANMIGRAN (PIZOTYLINE) [Concomitant]
  7. OXALIPLATIN [Concomitant]
  8. FLUOROURACIL [Concomitant]
  9. FLUOROURACIL [Concomitant]
  10. LEUCOVORIN CALCIUM [Concomitant]
  11. OXALIPLATIN [Concomitant]

REACTIONS (4)
  - FEBRILE NEUTROPENIA [None]
  - NECROSIS [None]
  - OSTEONECROSIS [None]
  - POSTOPERATIVE WOUND COMPLICATION [None]
